FAERS Safety Report 12089190 (Version 1)
Quarter: 2016Q1

REPORT INFORMATION
  Report Type: Spontaneous
  Country: US (occurrence: None)
  Receive Date: 20160217
  Receipt Date: 20160217
  Transmission Date: 20160526
  Serious: Yes (Disabling)
  Sender: FDA-Public Use
  Company Number: None

PATIENT
  Age: 30 Year
  Sex: Female
  Weight: 77.11 kg

DRUGS (11)
  1. HYDROCODONE [Concomitant]
     Active Substance: HYDROCODONE
  2. FLEXARIL [Concomitant]
  3. GABAPENTIN. [Concomitant]
     Active Substance: GABAPENTIN
  4. DECADRON [Suspect]
     Active Substance: DEXAMETHASONE
     Indication: SCIATICA
     Dosage: INTO THEE MUSCLE
     Route: 030
     Dates: start: 20160128, end: 20160128
  5. ALBUTEROL. [Concomitant]
     Active Substance: ALBUTEROL
  6. KENALOG [Suspect]
     Active Substance: TRIAMCINOLONE ACETONIDE
     Indication: SCIATICA
     Dosage: INTO THE MUSCLE
     Route: 030
     Dates: start: 20160128, end: 20160128
  7. CLONAZEPAM. [Concomitant]
     Active Substance: CLONAZEPAM
  8. VITAMIN B STRESS [Concomitant]
  9. ZINC [Concomitant]
     Active Substance: ZINC\ZINC CHLORIDE
  10. MAGNESIUM [Concomitant]
     Active Substance: MAGNESIUM
  11. CALCIUM [Concomitant]
     Active Substance: CALCIUM

REACTIONS (2)
  - Muscle twitching [None]
  - Hypoaesthesia [None]

NARRATIVE: CASE EVENT DATE: 20160128
